FAERS Safety Report 11590944 (Version 1)
Quarter: 2015Q4

REPORT INFORMATION
  Report Type: Report from Study
  Country: US (occurrence: US)
  Receive Date: 20151003
  Receipt Date: 20151003
  Transmission Date: 20160304
  Serious: Yes (Hospitalization, Other)
  Sender: FDA-Public Use
  Company Number: US-AMGEN-USASP2015101218

PATIENT
  Age: 72 Year
  Sex: Female

DRUGS (2)
  1. SENSIPAR [Suspect]
     Active Substance: CINACALCET HYDROCHLORIDE
     Indication: HYPERPARATHYROIDISM SECONDARY
     Dosage: 30 MG, BID
     Route: 048
  2. SENSIPAR [Suspect]
     Active Substance: CINACALCET HYDROCHLORIDE
     Indication: BLOOD CALCIUM INCREASED

REACTIONS (9)
  - Thrombosis [Recovered/Resolved]
  - Gout [Unknown]
  - Anaemia [Unknown]
  - Haematemesis [Recovered/Resolved]
  - Cataract [Unknown]
  - Coronary artery bypass [Unknown]
  - Blood calcium increased [Not Recovered/Not Resolved]
  - Gastric ulcer haemorrhage [Recovered/Resolved]
  - Gait disturbance [Not Recovered/Not Resolved]
